FAERS Safety Report 5364188-0 (Version None)
Quarter: 2007Q2

REPORT INFORMATION
  Report Type: 
  Country: None (occurrence: None)
  Receive Date: 20070620
  Receipt Date: 20070611
  Transmission Date: 20071010
  Serious: Yes (Other)
  Sender: FDA-Public Use
  Company Number: US-PFIZER INC-2007048470

PATIENT
  Sex: Female
  Weight: 100 kg

DRUGS (9)
  1. XALATAN [Suspect]
     Indication: GLAUCOMA
     Dates: start: 20060601, end: 20060601
  2. TRUSOPT [Suspect]
     Indication: GLAUCOMA
  3. METFORMIN HCL [Concomitant]
  4. NEXIUM [Concomitant]
  5. LIPITOR [Concomitant]
  6. BENICAR [Concomitant]
  7. SINGULAIR [Concomitant]
  8. ADVAIR DISKUS 100/50 [Concomitant]
  9. SALBUTAMOL [Concomitant]

REACTIONS (2)
  - PRURITUS [None]
  - SKIN DISCOLOURATION [None]
